FAERS Safety Report 16771067 (Version 6)
Quarter: 2020Q1

REPORT INFORMATION
  Report Type: Spontaneous
  Country: PL (occurrence: PL)
  Receive Date: 20190904
  Receipt Date: 20200131
  Transmission Date: 20200409
  Serious: Yes (Death, Other)
  Sender: FDA-Public Use
  Company Number: PHHY2019PL204186

PATIENT
  Age: 51 Year
  Sex: Female

DRUGS (8)
  1. TAMOXIFEN [Suspect]
     Active Substance: TAMOXIFEN
     Indication: BREAST CANCER
     Dosage: UNK
     Route: 065
  2. PACLITAXEL. [Interacting]
     Active Substance: PACLITAXEL
     Indication: CHRONIC MYELOID LEUKAEMIA
     Dosage: UNK UNK, QW
     Route: 065
     Dates: start: 201705
  3. IMATINIB MESILATE [Interacting]
     Active Substance: IMATINIB MESYLATE
     Indication: CHRONIC MYELOID LEUKAEMIA
     Dosage: UNK
     Route: 048
     Dates: start: 201601
  4. CAPECITABINE. [Suspect]
     Active Substance: CAPECITABINE
     Indication: CHRONIC MYELOID LEUKAEMIA
     Dosage: UNK
     Route: 065
     Dates: start: 201707
  5. LETROZOLE. [Suspect]
     Active Substance: LETROZOLE
     Indication: HORMONE THERAPY
  6. LETROZOLE. [Suspect]
     Active Substance: LETROZOLE
     Indication: BREAST CANCER
     Dosage: UNK
     Route: 065
  7. TAMOXIFEN [Suspect]
     Active Substance: TAMOXIFEN
     Indication: HORMONE THERAPY
  8. VINORELBIN WECAN (VINORELBINE DITARTRATE) [Suspect]
     Active Substance: VINORELBINE TARTRATE
     Indication: CHRONIC MYELOID LEUKAEMIA
     Dosage: UNK
     Route: 065
     Dates: start: 201710, end: 201804

REACTIONS (13)
  - Disease progression [Fatal]
  - Product use in unapproved indication [Fatal]
  - Therapy partial responder [Unknown]
  - Drug interaction [Fatal]
  - Malignant neoplasm progression [Unknown]
  - Death [Fatal]
  - Anaemia [Fatal]
  - Thrombocytopenia [Fatal]
  - Off label use [Unknown]
  - Chronic myeloid leukaemia [Fatal]
  - Breast cancer [Unknown]
  - Second primary malignancy [Recovering/Resolving]
  - Polyneuropathy [Fatal]

NARRATIVE: CASE EVENT DATE: 2016
